FAERS Safety Report 8455512-0 (Version None)
Quarter: 2012Q2

REPORT INFORMATION
  Report Type: 
  Country: None (occurrence: None)
  Receive Date: 20120621
  Receipt Date: 20120612
  Transmission Date: 20120825
  Serious: Yes (Other)
  Sender: FDA-Public Use
  Company Number: US-JNJFOC-20111010617

PATIENT
  Age: 54 Year
  Sex: Female

DRUGS (3)
  1. SIMPONI [Suspect]
     Indication: PRODUCT USED FOR UNKNOWN INDICATION
     Route: 058
     Dates: start: 20090705
  2. SIMPONI [Suspect]
     Route: 058
     Dates: end: 20110901
  3. SIMPONI [Suspect]
     Route: 058
     Dates: start: 20110201

REACTIONS (1)
  - MALIGNANT MELANOMA [None]
